FAERS Safety Report 8121235-0 (Version None)
Quarter: 2012Q1

REPORT INFORMATION
  Report Type: 
  Country: None (occurrence: None)
  Receive Date: 20120208
  Receipt Date: 20120130
  Transmission Date: 20120608
  Serious: Yes (Other)
  Sender: FDA-Public Use
  Company Number: JP-SANOFI-AVENTIS-2012SA006546

PATIENT

DRUGS (2)
  1. LANTUS [Suspect]
     Route: 065
  2. SOLOSTAR [Suspect]
     Indication: DEVICE THERAPY

REACTIONS (1)
  - INTERSTITIAL LUNG DISEASE [None]
